FAERS Safety Report 21679116 (Version 1)
Quarter: 2022Q4

REPORT INFORMATION
  Report Type: Spontaneous
  Country: US (occurrence: US)
  Receive Date: 20221204
  Receipt Date: 20221204
  Transmission Date: 20230112
  Serious: Yes (Hospitalization)
  Sender: FDA-Public Use
  Company Number: US-STRIDES ARCOLAB LIMITED-2022SP016234

PATIENT
  Age: 40 Year
  Sex: Male

DRUGS (8)
  1. DOXORUBICIN [Suspect]
     Active Substance: DOXORUBICIN
     Indication: B precursor type acute leukaemia
     Dosage: UNK (ADMINISTERED UNDER THE HYPER-CVAD REGIMEN)
     Route: 065
     Dates: start: 2021, end: 202112
  2. DEXAMETHASONE [Suspect]
     Active Substance: DEXAMETHASONE
     Indication: B precursor type acute leukaemia
     Dosage: UNK, (ADMINISTERED UNDER THE HYPER-CVAD REGIMEN)
     Route: 065
     Dates: start: 2021, end: 202112
  3. METHOTREXATE [Suspect]
     Active Substance: METHOTREXATE
     Indication: B precursor type acute leukaemia
     Dosage: UNK (ADMINISTERED UNDER THE HYPER-CVAD REGIMEN)
     Route: 065
     Dates: start: 2021, end: 202112
  4. RITUXIMAB [Suspect]
     Active Substance: RITUXIMAB
     Indication: B precursor type acute leukaemia
     Dosage: 375 MILLIGRAM/SQ. METER, CYCLICAL
     Route: 065
     Dates: start: 2021, end: 202112
  5. CYCLOPHOSPHAMIDE [Suspect]
     Active Substance: CYCLOPHOSPHAMIDE
     Indication: B precursor type acute leukaemia
     Dosage: UNK (ADMINISTERED UNDER THE HYPER-CVAD REGIMEN )
     Route: 065
     Dates: start: 2021, end: 202112
  6. VINCRISTINE [Suspect]
     Active Substance: VINCRISTINE
     Indication: B precursor type acute leukaemia
     Dosage: UNK (ADMINISTERED UNDER THE HYPER-CVAD REGIMEN)
     Route: 065
     Dates: start: 2021, end: 202112
  7. CYTARABINE [Suspect]
     Active Substance: CYTARABINE
     Indication: B precursor type acute leukaemia
     Dosage: UNK (ADMINISTERED UNDER THE HYPER-CVAD REGIMEN)
     Route: 065
     Dates: start: 2021, end: 202112
  8. REGEN-COV [Concomitant]
     Active Substance: CASIRIVIMAB\IMDEVIMAB
     Indication: COVID-19 prophylaxis
     Dosage: UNK
     Route: 065
     Dates: start: 2021

REACTIONS (8)
  - Respiratory failure [Unknown]
  - Transaminases increased [Recovered/Resolved]
  - Thrombocytopenia [Recovered/Resolved]
  - Lymphopenia [Recovered/Resolved]
  - COVID-19 [Recovered/Resolved]
  - SARS-CoV-2 viraemia [Unknown]
  - Pneumonia [Unknown]
  - Respiratory tract infection [Unknown]
